FAERS Safety Report 9143952 (Version 3)
Quarter: 2013Q2

REPORT INFORMATION
  Report Type: Spontaneous
  Country: ES (occurrence: ES)
  Receive Date: 20130306
  Receipt Date: 20130606
  Transmission Date: 20140414
  Serious: Yes (Hospitalization)
  Sender: FDA-Public Use
  Company Number: ES-AMGEN-ESPSP2013013073

PATIENT
  Age: 65 Year
  Sex: Female

DRUGS (3)
  1. PROLIA [Suspect]
     Indication: OSTEOPOROSIS
     Dosage: 60 MG, Q6MO
     Route: 058
     Dates: start: 20121015
  2. PROTELOS [Concomitant]
     Indication: OSTEOPOROSIS
     Dosage: UNK
     Route: 048
     Dates: end: 20130218
  3. OSVICAL D [Concomitant]
     Dosage: UNK
     Dates: start: 20121015

REACTIONS (4)
  - Atypical femur fracture [Recovering/Resolving]
  - Limb discomfort [Unknown]
  - Wheelchair user [Unknown]
  - Back pain [Unknown]
